FAERS Safety Report 5285312-4 (Version None)
Quarter: 2007Q2

REPORT INFORMATION
  Report Type: 
  Country: None (occurrence: None)
  Receive Date: 20070403
  Receipt Date: 20070326
  Transmission Date: 20071010
  Serious: Yes (Hospitalization)
  Sender: FDA-Public Use
  Company Number: ES-PFIZER INC-2007023994

PATIENT
  Age: 85 Year
  Sex: Female

DRUGS (6)
  1. ALDACTAZIDE [Suspect]
     Indication: CARDIAC FAILURE
     Route: 048
     Dates: start: 20040408, end: 20040421
  2. SEGURIL [Suspect]
     Indication: CARDIAC FAILURE
     Route: 048
  3. ACOVIL [Concomitant]
     Indication: CARDIAC FAILURE
     Route: 048
  4. CORDIPLAST [Concomitant]
     Indication: ISCHAEMIC CARDIOMYOPATHY
     Dosage: DAILY DOSE:10MG
     Route: 062
  5. TROMALYT [Concomitant]
     Dosage: DAILY DOSE:150MG
     Route: 048
  6. LOSEC [Concomitant]
     Dosage: DAILY DOSE:20MG
     Route: 048

REACTIONS (4)
  - ASTHENIA [None]
  - MALAISE [None]
  - MUSCLE SPASMS [None]
  - RENAL FAILURE ACUTE [None]
